FAERS Safety Report 16698346 (Version 2)
Quarter: 2019Q3

REPORT INFORMATION
  Report Type: Spontaneous
  Country: FR (occurrence: FR)
  Receive Date: 20190813
  Receipt Date: 20190828
  Transmission Date: 20191004
  Serious: Yes (Death, Hospitalization, Other)
  Sender: FDA-Public Use
  Company Number: FR-PFIZER INC-2019340421

PATIENT
  Age: 31 Year
  Sex: Male

DRUGS (6)
  1. SUTENT [Suspect]
     Active Substance: SUNITINIB MALATE
     Indication: RENAL NEOPLASM
     Dosage: 50 MG, 1X/DAY (FOR 4 WEEKS ON 2 WEEKS OFF)
     Route: 048
     Dates: start: 20190613, end: 20190718
  2. LOVENOX [Concomitant]
     Active Substance: ENOXAPARIN SODIUM
     Dosage: UNK
  3. DOLIPRANE [Concomitant]
     Active Substance: ACETAMINOPHEN
     Dosage: UNK
  4. TRAMADOL HCL [Concomitant]
     Active Substance: TRAMADOL HYDROCHLORIDE
     Dosage: 200 MG, 1X/DAY (100MG PR)
  5. ATARAX [Concomitant]
     Active Substance: HYDROXYZINE HYDROCHLORIDE
     Dosage: UNK
  6. TRAMADOL HCL [Concomitant]
     Active Substance: TRAMADOL HYDROCHLORIDE
     Dosage: 50 MG, AS NEEDED

REACTIONS (2)
  - Neoplasm progression [Fatal]
  - Pneumothorax [Recovering/Resolving]

NARRATIVE: CASE EVENT DATE: 20190712
